FAERS Safety Report 10011085 (Version 1)
Quarter: 2014Q1

REPORT INFORMATION
  Report Type: Spontaneous
  Country: US (occurrence: US)
  Receive Date: 20140314
  Receipt Date: 20140314
  Transmission Date: 20141002
  Serious: No
  Sender: FDA-Public Use
  Company Number: US-ENDO PHARMACEUTICALS INC.-OXYC20130017

PATIENT
  Age: 56 Year
  Sex: Male
  Weight: 90.8 kg

DRUGS (6)
  1. OXYCODONE HCL 30MG [Suspect]
     Indication: BACK PAIN
     Route: 048
     Dates: start: 20130403
  2. OXYCODONE HCL 30MG [Suspect]
     Indication: NECK PAIN
  3. OXYCODONE HCL 30MG [Suspect]
     Indication: HEADACHE
  4. OXYCODONE HCL 30MG [Concomitant]
     Indication: BACK PAIN
     Route: 048
     Dates: start: 2012, end: 20130402
  5. OXYCODONE HCL 30MG [Concomitant]
     Indication: NECK PAIN
  6. OXYCODONE HCL 30MG [Concomitant]
     Indication: HEADACHE

REACTIONS (2)
  - Drug ineffective [Not Recovered/Not Resolved]
  - Counterfeit drug administered [Not Recovered/Not Resolved]
